FAERS Safety Report 12963584 (Version 1)
Quarter: 2016Q4

REPORT INFORMATION
  Report Type: Spontaneous
  Country: FR (occurrence: FR)
  Receive Date: 20161122
  Receipt Date: 20161122
  Transmission Date: 20170207
  Serious: Yes (Hospitalization)
  Sender: FDA-Public Use
  Company Number: FR-GLENMARK PHARMACEUTICALS INC, USA.-2016GMK024977

PATIENT
  Age: 68 Year
  Sex: Male

DRUGS (6)
  1. IBRUTINIB [Interacting]
     Active Substance: IBRUTINIB
     Indication: MANTLE CELL LYMPHOMA
     Dosage: 560 MG, QD
     Route: 065
  2. TRANDOLAPRIL/VERAPAMIL HCL [Suspect]
     Active Substance: TRANDOLAPRIL\VERAPAMIL HYDROCHLORIDE
     Indication: HYPERTENSION
     Dosage: 180/2 MG, QD
     Route: 065
  3. ENTECAVIR. [Concomitant]
     Active Substance: ENTECAVIR
     Indication: HEPATITIS B
     Dosage: 0.5 MG, QD
     Route: 065
  4. OLMESARTAN [Concomitant]
     Active Substance: OLMESARTAN
     Indication: PRODUCT USED FOR UNKNOWN INDICATION
     Dosage: 20 MG, QD
     Route: 065
  5. LORATADINE. [Concomitant]
     Active Substance: LORATADINE
     Indication: PRODUCT USED FOR UNKNOWN INDICATION
     Dosage: 10 MG, QD (AS REQUIRED)
     Route: 065
  6. FENOFIBRATE. [Concomitant]
     Active Substance: FENOFIBRATE
     Indication: PRODUCT USED FOR UNKNOWN INDICATION
     Dosage: 200 MG, QD
     Route: 065

REACTIONS (9)
  - Drug dose omission [Unknown]
  - Drug interaction [Unknown]
  - Fall [Unknown]
  - Diarrhoea [Recovered/Resolved]
  - Nausea [Unknown]
  - Dehydration [Unknown]
  - Loss of consciousness [Unknown]
  - Dizziness [Unknown]
  - Malaise [Unknown]
